FAERS Safety Report 10408449 (Version 1)
Quarter: 2014Q3

REPORT INFORMATION
  Report Type: Spontaneous
  Country: JP (occurrence: JP)
  Receive Date: 20140826
  Receipt Date: 20140826
  Transmission Date: 20150326
  Serious: Yes (Other)
  Sender: FDA-Public Use
  Company Number: PHHY2014JP103387

PATIENT
  Age: 61 Year
  Sex: Male

DRUGS (5)
  1. DOCETAXEL [Suspect]
     Active Substance: DOCETAXEL
     Indication: SQUAMOUS CELL CARCINOMA
     Dosage: 75 MG/M2 ON DAY 2
  2. CISPLATIN. [Suspect]
     Active Substance: CISPLATIN
     Indication: SQUAMOUS CELL CARCINOMA
     Dosage: 100 MG/M2 ON DAY 2
  3. 5-FLUOROURACIL [Suspect]
     Active Substance: FLUOROURACIL
     Indication: SQUAMOUS CELL CARCINOMA
     Dosage: 1000 MG/M2 ON DAYS 1-5
  4. RADIATION [Suspect]
     Active Substance: RADIATION THERAPY
     Dosage: 16 GY, UNK
  5. RADIATION [Suspect]
     Active Substance: RADIATION THERAPY
     Indication: SQUAMOUS CELL CARCINOMA
     Dosage: 50 GY, UNK

REACTIONS (2)
  - Decreased appetite [Recovered/Resolved]
  - Skin disorder [Recovered/Resolved]
